FAERS Safety Report 14100827 (Version 1)
Quarter: 2017Q4

REPORT INFORMATION
  Report Type: Spontaneous
  Country: CN (occurrence: CN)
  Receive Date: 20171018
  Receipt Date: 20171018
  Transmission Date: 20180321
  Serious: Yes (Hospitalization, Disabling)
  Sender: FDA-Public Use
  Company Number: CN-JNJFOC-20171008644

PATIENT
  Age: 4 Day
  Sex: Female
  Weight: .72 kg

DRUGS (2)
  1. MOTRIN [Suspect]
     Active Substance: IBUPROFEN
     Indication: PATENT DUCTUS ARTERIOSUS
     Route: 048
     Dates: start: 20170729, end: 20170729
  2. MOTRIN [Suspect]
     Active Substance: IBUPROFEN
     Indication: PATENT DUCTUS ARTERIOSUS
     Route: 048
     Dates: start: 20170730, end: 20170730

REACTIONS (4)
  - Product use in unapproved indication [Recovering/Resolving]
  - Abdominal adhesions [Recovering/Resolving]
  - Intestinal perforation [Recovering/Resolving]
  - Off label use [Recovering/Resolving]

NARRATIVE: CASE EVENT DATE: 20170729
